FAERS Safety Report 14139930 (Version 1)
Quarter: 2017Q4

REPORT INFORMATION
  Report Type: Spontaneous
  Country: US (occurrence: US)
  Receive Date: 20171030
  Receipt Date: 20171030
  Transmission Date: 20180321
  Serious: Yes (Other)
  Sender: FDA-Public Use
  Company Number: US-ROCHE-2009586

PATIENT
  Age: 38 Year
  Sex: Female

DRUGS (2)
  1. RITUXAN [Suspect]
     Active Substance: RITUXIMAB
     Indication: CHRONIC LYMPHOCYTIC LEUKAEMIA
     Route: 065
  2. TECFIDERA [Suspect]
     Active Substance: DIMETHYL FUMARATE
     Indication: MULTIPLE SCLEROSIS
     Route: 065
     Dates: start: 20131011

REACTIONS (6)
  - Autoimmune thyroiditis [Unknown]
  - Pruritus [Not Recovered/Not Resolved]
  - Malignant melanoma [Recovered/Resolved]
  - Obsessive-compulsive disorder [Not Recovered/Not Resolved]
  - Paralysis [Recovered/Resolved]
  - Walking aid user [Not Recovered/Not Resolved]

NARRATIVE: CASE EVENT DATE: 20141014
